FAERS Safety Report 15532340 (Version 1)
Quarter: 2018Q4

REPORT INFORMATION
  Report Type: Spontaneous
  Country: FR (occurrence: FR)
  Receive Date: 20181019
  Receipt Date: 20181019
  Transmission Date: 20190205
  Serious: Yes (Hospitalization)
  Sender: FDA-Public Use
  Company Number: FR-009507513-1810FRA004045

PATIENT
  Age: 64 Year
  Sex: Female

DRUGS (1)
  1. DIPROSTENE [Suspect]
     Active Substance: BETAMETHASONE DIPROPIONATE\BETAMETHASONE SODIUM PHOSPHATE
     Indication: PERIARTHRITIS
     Dosage: 1 ML, QD
     Route: 014
     Dates: start: 20140428, end: 20140428

REACTIONS (3)
  - Type I hypersensitivity [Recovered/Resolved]
  - Allergic reaction to excipient [Recovered/Resolved]
  - Documented hypersensitivity to administered product [Recovered/Resolved]

NARRATIVE: CASE EVENT DATE: 20140428
